FAERS Safety Report 15963979 (Version 3)
Quarter: 2019Q3

REPORT INFORMATION
  Report Type: Report from Study
  Country: JP (occurrence: JP)
  Receive Date: 20190214
  Receipt Date: 20190906
  Transmission Date: 20191004
  Serious: Yes (Other)
  Sender: FDA-Public Use
  Company Number: PHJP2019JP001723

PATIENT
  Sex: Female
  Weight: 48 kg

DRUGS (6)
  1. ILARIS [Suspect]
     Active Substance: CANAKINUMAB
     Dosage: 150 MG, UNK
     Route: 058
     Dates: start: 20181225
  2. ILARIS [Suspect]
     Active Substance: CANAKINUMAB
     Indication: FAMILIAL MEDITERRANEAN FEVER
     Dosage: 150 MG, OT
     Route: 058
     Dates: start: 20180904
  3. ILARIS [Suspect]
     Active Substance: CANAKINUMAB
     Dosage: 150 MG, UNK
     Route: 058
     Dates: start: 20181030
  4. ILARIS [Suspect]
     Active Substance: CANAKINUMAB
     Dosage: 150 MG, UNK
     Route: 058
     Dates: start: 20181127
  5. ILARIS [Suspect]
     Active Substance: CANAKINUMAB
     Dosage: 150 MG, UNK
     Route: 058
     Dates: start: 20181001
  6. COLCHICINE. [Concomitant]
     Active Substance: COLCHICINE
     Indication: FAMILIAL MEDITERRANEAN FEVER
     Dosage: 1 MG, UNK
     Route: 048
     Dates: start: 20160909

REACTIONS (5)
  - Disease recurrence [Unknown]
  - Arthritis [Unknown]
  - Familial mediterranean fever [Unknown]
  - Crohn^s disease [Unknown]
  - Pyrexia [Unknown]
